FAERS Safety Report 5794722-8 (Version None)
Quarter: 2008Q2

REPORT INFORMATION
  Report Type: 
  Country: None (occurrence: None)
  Receive Date: 20080630
  Receipt Date: 20080620
  Transmission Date: 20081010
  Serious: Yes (Hospitalization)
  Sender: FDA-Public Use
  Company Number: PHHO2008JP07866

PATIENT
  Sex: Male
  Weight: 62 kg

DRUGS (1)
  1. VAA489A VAL_AML+TAB [Suspect]
     Indication: ESSENTIAL HYPERTENSION
     Dosage: UNK
     Dates: start: 20070831

REACTIONS (4)
  - ABDOMINAL PAIN [None]
  - FAECES DISCOLOURED [None]
  - GASTRIC ULCER [None]
  - PANCREATIC NEOPLASM [None]
